FAERS Safety Report 7493251-3 (Version None)
Quarter: 2011Q2

REPORT INFORMATION
  Report Type: 
  Country: None (occurrence: None)
  Receive Date: 20110520
  Receipt Date: 20110324
  Transmission Date: 20111010
  Serious: No
  Sender: FDA-Public Use
  Company Number: US-BAYER-2011-027343

PATIENT
  Age: 72 Year
  Sex: Female

DRUGS (2)
  1. FRAGMIN [Concomitant]
  2. SORAFENIB (RAF KINASE INHIBITOR) [Suspect]
     Indication: LUNG NEOPLASM MALIGNANT
     Dosage: 400 MG, BID
     Route: 048
     Dates: start: 20110321

REACTIONS (1)
  - RASH PRURITIC [None]
